FAERS Safety Report 10102358 (Version 1)
Quarter: 2014Q2

REPORT INFORMATION
  Report Type: Spontaneous
  Country: US (occurrence: US)
  Receive Date: 20140424
  Receipt Date: 20140424
  Transmission Date: 20141212
  Serious: No
  Sender: FDA-Public Use
  Company Number: US-PFIZER INC-2014109975

PATIENT
  Age: 35 Year
  Sex: Female

DRUGS (1)
  1. EFFEXOR XR [Suspect]
     Indication: MIGRAINE
     Dosage: 75 MG, 3X/DAY (1 TID)
     Route: 048

REACTIONS (7)
  - Off label use [Unknown]
  - Malaise [Unknown]
  - Migraine [Unknown]
  - Disturbance in attention [Unknown]
  - Vision blurred [Unknown]
  - Activities of daily living impaired [Unknown]
  - Bedridden [Unknown]
